FAERS Safety Report 10374713 (Version 2)
Quarter: 2014Q4

REPORT INFORMATION
  Report Type: Other
  Country: IT (occurrence: IT)
  Receive Date: 20140811
  Receipt Date: 20141009
  Transmission Date: 20150528
  Serious: Yes (Hospitalization)
  Sender: FDA-Public Use
  Company Number: IT-SUN PHARMACEUTICAL INDUSTRIES LTD-2014SUN01832

PATIENT
  Age: 67 Year
  Sex: Female

DRUGS (4)
  1. CALCIO LEVOFOLINATO TEVA - ^ 175 MG POLVERE PER SOLUZIONE PER INFUSION [Concomitant]
     Indication: PRODUCT USED FOR UNKNOWN INDICATION
     Dosage: 143 MG
  2. OXALIPLATINO SUN 5 MG/ML, CONCENTRATO PER SOLUZIONE PER INFUSIONE [Suspect]
     Active Substance: OXALIPLATIN
     Indication: COLON NEOPLASM
     Dosage: 97.24 MG CYCLICAL
     Route: 042
     Dates: start: 20140626, end: 20140724
  3. ALLOPURINOLO TEVA ITALIA (TEVA ITALIA S.R.L.) (M04AA01) [Concomitant]
     Indication: PRODUCT USED FOR UNKNOWN INDICATION
     Dosage: 300 MG
     Route: 048
  4. FLUOROURACILE TEVA - ^1 G/20 ML SOLUZIONE PER INFUSIONE^ 1 FLACONCINO [Concomitant]
     Indication: PRODUCT USED FOR UNKNOWN INDICATION
     Dosage: 1144 MG

REACTIONS (5)
  - Blood pressure systolic increased [None]
  - Stridor [Unknown]
  - Hypersensitivity [Unknown]
  - Dyspnoea [Unknown]
  - Acute myocardial infarction [Unknown]

NARRATIVE: CASE EVENT DATE: 20140724
